FAERS Safety Report 9538763 (Version 1)
Quarter: 2013Q2

REPORT INFORMATION
  Report Type: Spontaneous
  Country: US (occurrence: None)
  Receive Date: 20130517
  Receipt Date: 20130517
  Transmission Date: 20140414
  Serious: Yes (Hospitalization)
  Sender: FDA-Public Use
  Company Number: 2012PL000060

PATIENT
  Age: 22 Year
  Sex: Male
  Weight: 74.84 kg

DRUGS (3)
  1. IMURAN (AZATHIOPRINE) [Suspect]
     Indication: COLITIS ULCERATIVE
     Dosage: UNK PO
     Route: 048
     Dates: start: 20120209, end: 201202
  2. ASACOL [Concomitant]
  3. ASACOL [Concomitant]

REACTIONS (4)
  - Hypersensitivity [None]
  - Blister [None]
  - Swelling face [None]
  - Pyrexia [None]
